FAERS Safety Report 4500169-4 (Version None)
Quarter: 2004Q4

REPORT INFORMATION
  Report Type: 
  Country: None (occurrence: None)
  Receive Date: 20041112
  Receipt Date: 20040121
  Transmission Date: 20050328
  Serious: Yes (Other)
  Sender: FDA-Public Use
  Company Number: PHBS2004JP01104

PATIENT
  Age: 59 Year
  Sex: Male

DRUGS (3)
  1. DIOVAN [Suspect]
     Indication: HYPERTENSION
     Dosage: 80 MG/DAY
     Route: 048
     Dates: start: 20030628, end: 20030718
  2. EPADEL [Concomitant]
     Dosage: 3 DF, UNK
     Route: 048
  3. LUVOX [Concomitant]
     Dosage: 50 MG, UNK
     Route: 048

REACTIONS (4)
  - APATHY [None]
  - DECREASED APPETITE [None]
  - DEPRESSED MOOD [None]
  - DEPRESSIVE SYMPTOM [None]
